FAERS Safety Report 9843489 (Version 1)
Quarter: 2013Q4

REPORT INFORMATION
  Report Type: Spontaneous
  Country: US (occurrence: None)
  Receive Date: 20131223
  Receipt Date: 20131223
  Transmission Date: 20140711
  Serious: No
  Sender: FDA-Public Use
  Company Number: 219335LEO

PATIENT
  Sex: Male

DRUGS (4)
  1. PICATO (0.015%, GEL) [Suspect]
     Indication: ACTINIC KERATOSIS
     Route: 061
     Dates: start: 20121006, end: 20121008
  2. LIPITOR [Concomitant]
  3. LISINOPRIL [Concomitant]
  4. ASA [Concomitant]

REACTIONS (5)
  - Skin exfoliation [None]
  - Skin exfoliation [None]
  - Swelling [None]
  - Blister [None]
  - Erythema [None]
